FAERS Safety Report 7526345-4 (Version None)
Quarter: 2011Q2

REPORT INFORMATION
  Report Type: 
  Country: None (occurrence: None)
  Receive Date: 20110527
  Receipt Date: 20110518
  Transmission Date: 20111010
  Serious: Yes (Other)
  Sender: FDA-Public Use
  Company Number: 2011-0647

PATIENT
  Age: 6 Year
  Sex: Male
  Weight: 14 kg

DRUGS (5)
  1. INCRELEX [Suspect]
  2. INCRELEX [Suspect]
     Indication: INSULIN-LIKE GROWTH FACTOR DECREASED
     Dosage: 1.2 MG (0.6 MG,2 IN 1 D),SUBCUTANEOUS, 2.4 MG (1.2 MG,2 IN 1 D),SUBCUTANEOUS, .3.6 MG (1.8 MQ,2 IN 1
     Route: 058
     Dates: start: 20110302, end: 20110301
  3. INCRELEX [Suspect]
     Indication: INSULIN-LIKE GROWTH FACTOR DECREASED
     Dosage: 1.2 MG (0.6 MG,2 IN 1 D),SUBCUTANEOUS, 2.4 MG (1.2 MG,2 IN 1 D),SUBCUTANEOUS, .3.6 MG (1.8 MQ,2 IN 1
     Route: 058
     Dates: start: 20110301, end: 20110301
  4. INCRELEX [Suspect]
     Indication: INSULIN-LIKE GROWTH FACTOR DECREASED
     Dosage: 1.2 MG (0.6 MG,2 IN 1 D),SUBCUTANEOUS, 2.4 MG (1.2 MG,2 IN 1 D),SUBCUTANEOUS, .3.6 MG (1.8 MQ,2 IN 1
     Route: 058
     Dates: start: 20110407, end: 20110414
  5. INCRELEX [Suspect]
     Indication: INSULIN-LIKE GROWTH FACTOR DECREASED
     Dosage: 1.2 MG (0.6 MG,2 IN 1 D),SUBCUTANEOUS, 2.4 MG (1.2 MG,2 IN 1 D),SUBCUTANEOUS, .3.6 MG (1.8 MQ,2 IN 1
     Route: 058
     Dates: start: 20110301, end: 20110407

REACTIONS (4)
  - BLOOD GLUCOSE INCREASED [None]
  - SOMNOLENCE [None]
  - VISION BLURRED [None]
  - HEADACHE [None]
